FAERS Safety Report 11937561 (Version 1)
Quarter: 2016Q1

REPORT INFORMATION
  Report Type: Spontaneous
  Country: FR (occurrence: FR)
  Receive Date: 20160122
  Receipt Date: 20160122
  Transmission Date: 20160526
  Serious: Yes (Hospitalization)
  Sender: FDA-Public Use
  Company Number: FR-ROCHE-1698079

PATIENT
  Age: 79 Year
  Sex: Female

DRUGS (9)
  1. ESOMEPRAZOLE [Concomitant]
     Active Substance: ESOMEPRAZOLE
  2. BROMAZEPAM [Concomitant]
     Active Substance: BROMAZEPAM
     Route: 065
  3. HEPARINE CHOAY [Suspect]
     Active Substance: HEPARIN SODIUM
     Indication: CAROTID ARTERY DISSECTION
     Dosage: 9000 U,9000 IU EVERY 12 HOURS; 18000 IU TOTAL DOSE
     Route: 042
     Dates: start: 20151207, end: 20151209
  4. COTAREG [Concomitant]
     Active Substance: HYDROCHLOROTHIAZIDE\VALSARTAN
     Dosage: STRENGTH : 160 MG/ 12.5 MG
     Route: 065
  5. ATENOLOL. [Concomitant]
     Active Substance: ATENOLOL
  6. ACTILYSE [Suspect]
     Active Substance: ALTEPLASE
     Indication: THROMBOLYSIS
     Route: 042
     Dates: start: 20151206, end: 20151206
  7. ADROVANCE [Concomitant]
     Active Substance: ALENDRONATE SODIUM\CHOLECALCIFEROL
  8. ACTILYSE [Suspect]
     Active Substance: ALTEPLASE
     Route: 013
     Dates: start: 20151206, end: 20151206
  9. LERCAN [Concomitant]
     Active Substance: LERCANIDIPINE

REACTIONS (2)
  - Muscle haemorrhage [Not Recovered/Not Resolved]
  - Haemoglobin decreased [Recovered/Resolved]

NARRATIVE: CASE EVENT DATE: 20151209
